FAERS Safety Report 5267941-7 (Version None)
Quarter: 2007Q1

REPORT INFORMATION
  Report Type: 
  Country: None (occurrence: None)
  Receive Date: 20061213
  Receipt Date: 20020806
  Transmission Date: 20070707
  Serious: No
  Sender: FDA-Public Use
  Company Number: 2002UW00136

PATIENT
  Age: 68 Year
  Sex: Female
  Weight: 80.7403 kg

DRUGS (8)
  1. TAMOXIFEN CITRATE [Suspect]
     Indication: BREAST CANCER
     Dosage: 20 MG PO
     Route: 048
  2. LOTREL [Concomitant]
  3. HYDRODIURIL [Concomitant]
  4. CALCIUM [Concomitant]
  5. VITAMIN CAP [Concomitant]
  6. CLONAZEPAM [Concomitant]
  7. CLONIDINE [Concomitant]
  8. IRON [Concomitant]

REACTIONS (4)
  - CATARACT [None]
  - HALO VISION [None]
  - PSEUDOPHAKIA [None]
  - VITREOUS DETACHMENT [None]
